FAERS Safety Report 6577800-5 (Version None)
Quarter: 2010Q1

REPORT INFORMATION
  Report Type: 
  Country: None (occurrence: None)
  Receive Date: 20100211
  Receipt Date: 20100203
  Transmission Date: 20100710
  Serious: Yes (Death)
  Sender: FDA-Public Use
  Company Number: US-ROCHE-681437

PATIENT
  Sex: Female
  Weight: 98.4 kg

DRUGS (1)
  1. CAPECITABINE [Suspect]
     Indication: PANCREATIC CARCINOMA
     Dosage: TAKEN IN MORNING AND IN THE EVENING
     Route: 048
     Dates: start: 20091116, end: 20100111

REACTIONS (1)
  - MALIGNANT NEOPLASM PROGRESSION [None]
